FAERS Safety Report 6402696-1 (Version None)
Quarter: 2009Q4

REPORT INFORMATION
  Report Type: 
  Country: None (occurrence: None)
  Receive Date: 20091009
  Receipt Date: 20091001
  Transmission Date: 20100525
  Serious: Yes (Hospitalization)
  Sender: FDA-Public Use
  Company Number: GXKR2009GB10870

PATIENT
  Age: 59 Year
  Weight: 55 kg

DRUGS (1)
  1. ALENDRONIC ACID (NGX) (ALENDRONIC ACID) UNKNOWN [Suspect]
     Indication: OSTEOPOROSIS
     Dosage: 70 MG, QW, ORAL
     Route: 048
     Dates: start: 20010101, end: 20080101

REACTIONS (1)
  - FEMUR FRACTURE [None]
